FAERS Safety Report 14026336 (Version 1)
Quarter: 2017Q3

REPORT INFORMATION
  Report Type: Spontaneous
  Country: FR (occurrence: FR)
  Receive Date: 20170929
  Receipt Date: 20170929
  Transmission Date: 20171128
  Serious: Yes (Other)
  Sender: FDA-Public Use
  Company Number: FR-MERCK KGAA-2028293

PATIENT
  Age: 26 Year
  Sex: Female

DRUGS (10)
  1. FERO GRAD (FEOGEN) [Concomitant]
     Route: 048
     Dates: start: 20170617
  2. UVEDOSE (COLECALCIFEROL) [Concomitant]
     Route: 048
     Dates: start: 20170617
  3. CREON [Concomitant]
     Active Substance: PANCRELIPASE AMYLASE\PANCRELIPASE LIPASE\PANCRELIPASE PROTEASE
     Dates: start: 201701
  4. OMEPRAZOLE. [Concomitant]
     Active Substance: OMEPRAZOLE
     Dates: start: 201701
  5. TRULICITY [Concomitant]
     Active Substance: DULAGLUTIDE
     Route: 058
  6. VICTOZA [Concomitant]
     Active Substance: LIRAGLUTIDE
     Dates: start: 201701, end: 201708
  7. MIOREL (THIOCOLCHICOSIDE) [Concomitant]
     Active Substance: THIOCOLCHICOSIDE
     Route: 048
     Dates: start: 20170805
  8. NOVOTHYROX [Suspect]
     Active Substance: LEVOTHYROXINE SODIUM
     Indication: HYPOTHYROIDISM
     Route: 048
     Dates: start: 201704
  9. NOVOTHYROX [Suspect]
     Active Substance: LEVOTHYROXINE SODIUM
     Route: 048
     Dates: start: 201708
  10. MOPRAL (OMEPRAZOLE) [Concomitant]
     Active Substance: OMEPRAZOLE SODIUM
     Dates: start: 20170519

REACTIONS (7)
  - Fatigue [Not Recovered/Not Resolved]
  - Neuralgia [Not Recovered/Not Resolved]
  - Sciatica [Not Recovered/Not Resolved]
  - Memory impairment [Not Recovered/Not Resolved]
  - Pruritus [Not Recovered/Not Resolved]
  - Blood thyroid stimulating hormone increased [Not Recovered/Not Resolved]
  - Alopecia [Not Recovered/Not Resolved]

NARRATIVE: CASE EVENT DATE: 20170802
